FAERS Safety Report 17407393 (Version 1)
Quarter: 2020Q1

REPORT INFORMATION
  Report Type: Spontaneous
  Country: US (occurrence: US)
  Receive Date: 20200128
  Receipt Date: 20200128
  Transmission Date: 20200409
  Serious: No
  Sender: FDA-Public Use
  Company Number: None

PATIENT
  Sex: Female

DRUGS (1)
  1. MAKENA [Suspect]
     Active Substance: HYDROXYPROGESTERONE CAPROATE
     Indication: PREMATURE LABOUR
     Dosage: ?          OTHER STRENGTH:275MG/1.1 M;?
     Route: 058
     Dates: start: 202001, end: 202001

REACTIONS (3)
  - Injection site pruritus [None]
  - Therapy cessation [None]
  - Injection site erythema [None]
